FAERS Safety Report 7903586-5 (Version None)
Quarter: 2011Q4

REPORT INFORMATION
  Report Type: 
  Country: None (occurrence: None)
  Receive Date: 20111109
  Receipt Date: 20111109
  Transmission Date: 20120403
  Serious: Yes (Other)
  Sender: FDA-Public Use
  Company Number: None

PATIENT
  Sex: Male
  Weight: 79.832 kg

DRUGS (2)
  1. CRESTOR [Concomitant]
     Indication: ARTERIOSCLEROSIS
  2. CADUET [Suspect]
     Indication: ARTERIOSCLEROSIS

REACTIONS (2)
  - MYALGIA [None]
  - ARTHRALGIA [None]
